FAERS Safety Report 6359810-6 (Version None)
Quarter: 2009Q3

REPORT INFORMATION
  Report Type: 
  Country: None (occurrence: None)
  Receive Date: 20090917
  Receipt Date: 20090911
  Transmission Date: 20100115
  Serious: Yes (Hospitalization)
  Sender: FDA-Public Use
  Company Number: A0806908A

PATIENT
  Age: 70 Year
  Sex: Male

DRUGS (8)
  1. COREG [Suspect]
     Indication: HYPERTENSION
     Dosage: 12.5MG PER DAY
     Route: 048
     Dates: start: 20080101, end: 20090911
  2. LISINOPRIL [Concomitant]
  3. LOVASTATIN [Concomitant]
  4. FLOMAX [Concomitant]
  5. GLYBURIDE [Concomitant]
  6. METFORMIN HCL [Concomitant]
  7. ACTIQ [Concomitant]
  8. DURAGESIC-100 [Concomitant]

REACTIONS (4)
  - BLOOD PRESSURE FLUCTUATION [None]
  - DRUG INEFFECTIVE [None]
  - HYPERTENSION [None]
  - HYPOTENSION [None]
